FAERS Safety Report 8912924 (Version 1)
Quarter: 2012Q4

REPORT INFORMATION
  Report Type: Report from Study
  Country: CH (occurrence: CH)
  Receive Date: 20121116
  Receipt Date: 20121116
  Transmission Date: 20130627
  Serious: Yes (Hospitalization)
  Sender: FDA-Public Use
  Company Number: CH-GLAXOSMITHKLINE-B0617220A

PATIENT
  Age: 70 Year
  Sex: Male
  Weight: 65.9 kg

DRUGS (9)
  1. PAZOPANIB [Suspect]
     Indication: NEOPLASM
     Dosage: 800MG Cyclic
     Route: 048
     Dates: start: 20091124, end: 20091201
  2. EPIRUBICIN [Suspect]
     Indication: NEOPLASM
     Dosage: 90MGM2 Cyclic
     Route: 048
     Dates: start: 20091111, end: 20091202
  3. DURAGESIC [Concomitant]
     Indication: TUMOUR PAIN
     Dosage: 25GH Every 3 days
     Route: 058
     Dates: start: 20091006
  4. MORPHINE [Concomitant]
     Indication: TUMOUR PAIN
     Route: 048
     Dates: start: 20091102
  5. CODAFALGAN [Concomitant]
     Indication: TUMOUR PAIN
     Dosage: 1G Three times per day
     Route: 048
     Dates: start: 20090818
  6. UNKNOWN DRUG [Concomitant]
     Indication: INSOMNIA
     Dosage: 1MG Four times per day
     Route: 048
     Dates: start: 20090828
  7. LAXOBERON [Concomitant]
     Indication: CONSTIPATION PROPHYLAXIS
     Dosage: 20U As required
     Route: 048
     Dates: start: 20090828
  8. HALDOL [Concomitant]
     Indication: PAIN PROPHYLAXIS
     Dosage: 5DROP Three times per day
     Route: 048
     Dates: start: 20091210
  9. FLECTOR [Concomitant]
     Indication: PAIN PROPHYLAXIS
     Dosage: 1PAT As required
     Route: 058
     Dates: start: 20091102

REACTIONS (2)
  - Mucosal inflammation [Recovered/Resolved]
  - Neutropenia [Recovered/Resolved]
